FAERS Safety Report 8047718-X (Version None)
Quarter: 2012Q1

REPORT INFORMATION
  Report Type: 
  Country: None (occurrence: None)
  Receive Date: 20120116
  Receipt Date: 20120106
  Transmission Date: 20120608
  Serious: Yes (Other)
  Sender: FDA-Public Use
  Company Number: CHPA2012US000725

PATIENT
  Age: 49 Year
  Sex: Male

DRUGS (1)
  1. HABITROL [Suspect]
     Indication: SMOKING CESSATION THERAPY
     Dosage: 21 MG, QD
     Route: 062
     Dates: start: 20120103

REACTIONS (7)
  - DISCOMFORT [None]
  - HEAD DISCOMFORT [None]
  - OVERDOSE [None]
  - STRESS [None]
  - HOMICIDAL IDEATION [None]
  - ANGER [None]
  - TREATMENT NONCOMPLIANCE [None]
